FAERS Safety Report 8788103 (Version 2)
Quarter: 2013Q1

REPORT INFORMATION
  Report Type: Spontaneous
  Country: US (occurrence: US)
  Receive Date: 20120914
  Receipt Date: 20130201
  Transmission Date: 20140127
  Serious: Yes (Death)
  Sender: FDA-Public Use
  Company Number: US-ROCHE-1127600

PATIENT
  Sex: Male

DRUGS (1)
  1. AVASTIN [Suspect]
     Indication: RENAL CANCER
     Route: 065

REACTIONS (1)
  - Death [Fatal]
